FAERS Safety Report 7897857-9 (Version None)
Quarter: 2011Q4

REPORT INFORMATION
  Report Type: 
  Country: None (occurrence: None)
  Receive Date: 20111107
  Receipt Date: 20111028
  Transmission Date: 20120403
  Serious: Yes (Hospitalization, Other)
  Sender: FDA-Public Use
  Company Number: PHHY2011EC96093

PATIENT
  Sex: Female

DRUGS (2)
  1. HEPA-MERZ [Concomitant]
  2. ZOLEDRONOC ACID [Suspect]
     Indication: OSTEOPOROSIS
     Dosage: 5 MG/100 ML
     Route: 042
     Dates: start: 20101228

REACTIONS (4)
  - GENERAL PHYSICAL CONDITION ABNORMAL [None]
  - HEPATIC FUNCTION ABNORMAL [None]
  - ARTHRALGIA [None]
  - LIVER DISORDER [None]
